FAERS Safety Report 15042628 (Version 2)
Quarter: 2018Q3

REPORT INFORMATION
  Report Type: Spontaneous
  Country: US (occurrence: US)
  Receive Date: 20180621
  Receipt Date: 20180711
  Transmission Date: 20181010
  Serious: No
  Sender: FDA-Public Use
  Company Number: US-PFIZER INC-2018250651

PATIENT
  Age: 59 Year
  Sex: Male

DRUGS (1)
  1. VIAGRA [Suspect]
     Active Substance: SILDENAFIL CITRATE
     Dosage: 100 MG, UNK

REACTIONS (3)
  - Drug ineffective [Not Recovered/Not Resolved]
  - Back pain [Unknown]
  - Upper respiratory tract congestion [Unknown]

NARRATIVE: CASE EVENT DATE: 20180615
